FAERS Safety Report 21009689 (Version 1)
Quarter: 2022Q2

REPORT INFORMATION
  Report Type: Spontaneous
  Country: US (occurrence: None)
  Receive Date: 20220626
  Receipt Date: 20220626
  Transmission Date: 20220721
  Serious: Yes (Life-Threatening, Disabling)
  Sender: FDA-Public Use
  Company Number: None

PATIENT
  Age: 60 Year
  Sex: Male
  Weight: 85.5 kg

DRUGS (8)
  1. FINASTERIDE [Suspect]
     Active Substance: FINASTERIDE
     Indication: Prostatomegaly
     Dosage: FREQUENCY : AT BEDTIME;?
     Route: 048
  2. Atorvastin 5mg/day [Concomitant]
  3. Escitalopram10mg/day [Concomitant]
  4. Pantoprazole 20mg/day [Concomitant]
  5. Daily multi vitamin [Concomitant]
  6. daily turmeric [Concomitant]
  7. daily 1000mg fish oil [Concomitant]
  8. Pregablin 100mg/day [Concomitant]

REACTIONS (8)
  - Weight decreased [None]
  - Fatigue [None]
  - Amnesia [None]
  - Suicidal behaviour [None]
  - Emotional poverty [None]
  - Muscle fatigue [None]
  - Myalgia [None]
  - Tinnitus [None]

NARRATIVE: CASE EVENT DATE: 20200324
